FAERS Safety Report 16357209 (Version 2)
Quarter: 2020Q1

REPORT INFORMATION
  Report Type: Spontaneous
  Country: PT (occurrence: PT)
  Receive Date: 20190527
  Receipt Date: 20200215
  Transmission Date: 20200409
  Serious: Yes (Disabling, Other)
  Sender: FDA-Public Use
  Company Number: PT-ACCORD-129382

PATIENT
  Age: 52 Year
  Sex: Female
  Weight: 60 kg

DRUGS (6)
  1. CARBOPLATIN HIKMA [Suspect]
     Active Substance: CARBOPLATIN
     Indication: LUNG NEOPLASM MALIGNANT
     Dosage: 430MG CADA 21 DIAS
     Route: 042
     Dates: start: 20190131
  2. DEXKETOPROFEN [Concomitant]
     Active Substance: DEXKETOPROFEN
  3. DIAZEPAM. [Concomitant]
     Active Substance: DIAZEPAM
  4. GEMCITABINE ACCORD [Suspect]
     Active Substance: GEMCITABINE HYDROCHLORIDE
     Indication: LUNG NEOPLASM MALIGNANT
     Route: 042
     Dates: start: 20190131
  5. HYDROCHLOROTHIAZIDE/VALSARTAN [Concomitant]
     Active Substance: HYDROCHLOROTHIAZIDE\VALSARTAN
  6. PANKREOFLAT [Concomitant]

REACTIONS (2)
  - Ischaemic stroke [Unknown]
  - Thrombocytopenia [Unknown]

NARRATIVE: CASE EVENT DATE: 20190326
